FAERS Safety Report 23517348 (Version 4)
Quarter: 2024Q1

REPORT INFORMATION
  Report Type: Spontaneous
  Country: CA (occurrence: CA)
  Receive Date: 20240213
  Receipt Date: 20240321
  Transmission Date: 20240409
  Serious: No
  Sender: FDA-Public Use
  Company Number: CA-PFIZER INC-202300114635

PATIENT
  Age: 13 Year
  Sex: Male

DRUGS (5)
  1. ABRILADA [Suspect]
     Active Substance: ADALIMUMAB-AFZB
     Indication: Crohn^s disease
     Dosage: 1 DF, 160MG FIRST DOSE AND 80MG WEEK 2 AND THEN 40MG MAINTENANCE EVERY 2 WEEKS
     Route: 058
     Dates: start: 20221119, end: 20221119
  2. ABRILADA [Suspect]
     Active Substance: ADALIMUMAB-AFZB
     Dosage: 1 DF, 160MG WEEK0 AND 80MG WEEK2 AND THEN 40MG, Q2WEEKS
     Route: 058
     Dates: start: 20221208, end: 2023
  3. ABRILADA [Suspect]
     Active Substance: ADALIMUMAB-AFZB
     Dosage: 40 MG
     Route: 058
     Dates: start: 20230310
  4. ABRILADA [Suspect]
     Active Substance: ADALIMUMAB-AFZB
     Dosage: 40 MG, WEEKLY
     Route: 058
     Dates: start: 2023
  5. ABRILADA [Suspect]
     Active Substance: ADALIMUMAB-AFZB
     Dosage: 40 MG, WEEKLY
     Route: 058
     Dates: start: 2023

REACTIONS (8)
  - Condition aggravated [Not Recovered/Not Resolved]
  - Device operational issue [Recovered/Resolved]
  - Device leakage [Recovered/Resolved]
  - Incorrect dose administered by device [Recovered/Resolved]
  - Accidental exposure to product [Recovered/Resolved]
  - Exposure via skin contact [Recovered/Resolved]
  - Injection site pain [Unknown]
  - Off label use [Unknown]

NARRATIVE: CASE EVENT DATE: 20230101
